FAERS Safety Report 5699080-5 (Version None)
Quarter: 2008Q2

REPORT INFORMATION
  Report Type: 
  Country: None (occurrence: None)
  Receive Date: 20080408
  Receipt Date: 20061107
  Transmission Date: 20081010
  Serious: No
  Sender: FDA-Public Use
  Company Number: US-BAYER-US-2006-034683

PATIENT
  Age: 72 Year
  Sex: Male

DRUGS (3)
  1. ULTRAVIST 300 [Suspect]
     Indication: COMPUTERISED TOMOGRAM ABDOMEN
     Route: 042
     Dates: start: 20060920, end: 20060920
  2. COUMADIN [Concomitant]
  3. GASTROGRAFIN [Concomitant]

REACTIONS (3)
  - INFUSION RELATED REACTION [None]
  - PRURITUS [None]
  - URTICARIA [None]
